FAERS Safety Report 7716468-9 (Version None)
Quarter: 2011Q3

REPORT INFORMATION
  Report Type: 
  Country: None (occurrence: None)
  Receive Date: 20110829
  Receipt Date: 20110825
  Transmission Date: 20111222
  Serious: Yes (Death, Other)
  Sender: FDA-Public Use
  Company Number: PHHY2011JP75415

PATIENT
  Age: 74 Year
  Sex: Male

DRUGS (8)
  1. FLUOROURACIL [Concomitant]
     Dosage: 1800 MG/M2, UNK
  2. 5-HYDROXYTRYPTAMINE RECEPTOR TYPE-3 ANTAGONIST [Concomitant]
     Indication: ANTIEMETIC SUPPORTIVE CARE
  3. OXALIPLATIN [Suspect]
     Dosage: 63 MG/M2, UNK
  4. OXALIPLATIN [Suspect]
     Indication: RECTAL CANCER METASTATIC
     Dosage: 85 MG/M2, UNK
  5. FLUOROURACIL [Concomitant]
     Indication: RECTAL CANCER METASTATIC
     Dosage: 400 MG/M2, UNK
  6. LEUCOVORIN CALCIUM [Concomitant]
     Indication: RECTAL CANCER METASTATIC
     Dosage: 200 MG/M2, UNK
  7. DEXAMETHASONE [Concomitant]
     Indication: ANTIEMETIC SUPPORTIVE CARE
  8. FLUOROURACIL [Concomitant]
     Dosage: 2400 MG/M2, UNK

REACTIONS (15)
  - PYREXIA [None]
  - THROMBOCYTOPENIA [None]
  - BRONCHIECTASIS [None]
  - METASTASES TO LIVER [None]
  - NEUTROPENIA [None]
  - NEUROPATHY PERIPHERAL [None]
  - STOMATITIS [None]
  - HYPOXIA [None]
  - INTERSTITIAL LUNG DISEASE [None]
  - RESPIRATORY FAILURE [None]
  - COUGH [None]
  - HYPERSENSITIVITY [None]
  - DYSPNOEA [None]
  - RESPIRATORY DISTRESS [None]
  - LUNG DISORDER [None]
